FAERS Safety Report 4512099-2 (Version None)
Quarter: 2004Q4

REPORT INFORMATION
  Report Type: 
  Country: None (occurrence: None)
  Receive Date: 20041123
  Receipt Date: 20041111
  Transmission Date: 20050328
  Serious: Yes (Hospitalization)
  Sender: FDA-Public Use
  Company Number: A01200405733

PATIENT
  Age: 53 Year
  Sex: Male

DRUGS (7)
  1. PLAVIX [Suspect]
     Indication: ANGINA UNSTABLE
     Dosage: 75 MG QD
     Route: 048
     Dates: start: 20041101, end: 20041107
  2. PLAVIX [Suspect]
     Indication: CARDIAC OPERATION
     Dosage: 75 MG QD
     Route: 048
     Dates: start: 20041101, end: 20041107
  3. PLAVIX [Suspect]
     Indication: CORONARY ARTERY DISEASE
     Dosage: 75 MG QD
     Route: 048
     Dates: start: 20041101, end: 20041107
  4. PENICILLUM (PENICILLIN G) [Concomitant]
  5. DALTEPARIN SODIUM [Concomitant]
  6. ASPIRIN [Concomitant]
  7. METOPROLOL [Concomitant]

REACTIONS (1)
  - DERMATITIS EXFOLIATIVE GENERALISED [None]
